FAERS Safety Report 7788384-8 (Version None)
Quarter: 2011Q3

REPORT INFORMATION
  Report Type: 
  Country: None (occurrence: None)
  Receive Date: 20110928
  Receipt Date: 20110914
  Transmission Date: 20111222
  Serious: Yes (Life-Threatening)
  Sender: FDA-Public Use
  Company Number: TCI2011A04630

PATIENT
  Age: 56 Year
  Sex: Male

DRUGS (7)
  1. PRAVATIN (PRAVASTATIN SODIUM) [Concomitant]
  2. ACTOS [Suspect]
     Indication: DIABETES MELLITUS
     Dosage: 15 MG (15 MG, 1 IN 1 D), PER ORAL
     Route: 048
     Dates: start: 20071013, end: 20110820
  3. BEZATOL SR (BEZAFIBRATE) [Concomitant]
  4. ALLOPURINOL [Concomitant]
  5. BASEN (VOGLIBOSE) [Concomitant]
  6. METFORMIN HCL [Concomitant]
  7. GLYBURIDE [Concomitant]

REACTIONS (3)
  - BLOOD URINE PRESENT [None]
  - NEPHROLITHIASIS [None]
  - BLADDER CANCER [None]
